FAERS Safety Report 7527460-1 (Version None)
Quarter: 2011Q2

REPORT INFORMATION
  Report Type: 
  Country: None (occurrence: None)
  Receive Date: 20110512
  Receipt Date: 20110210
  Transmission Date: 20111010
  Serious: Yes (Other)
  Sender: FDA-Public Use
  Company Number: 1000018769

PATIENT
  Age: 36 Year
  Sex: Female

DRUGS (2)
  1. SAVELLA [Suspect]
     Indication: FIBROMYALGIA
     Dates: start: 20100101, end: 20100101
  2. SAVELLA [Suspect]
     Indication: FIBROMYALGIA
     Dates: start: 20100101, end: 20100101

REACTIONS (1)
  - HYPERTENSION [None]
